FAERS Safety Report 15241185 (Version 1)
Quarter: 2018Q3

REPORT INFORMATION
  Report Type: Spontaneous
  Country: US (occurrence: US)
  Receive Date: 20180711
  Receipt Date: 20180711
  Transmission Date: 20181010
  Serious: Yes (Hospitalization)
  Sender: FDA-Public Use
  Company Number: None

PATIENT
  Sex: Female

DRUGS (11)
  1. FORTEO [Suspect]
     Active Substance: TERIPARATIDE
     Indication: OSTEOPOROSIS
     Route: 058
     Dates: start: 20170126
  2. IBUPROFEN 600MG [Concomitant]
     Active Substance: IBUPROFEN
  3. MYRBETRIQ [Concomitant]
     Active Substance: MIRABEGRON
  4. VITAMIN D3 2000 UNITS [Concomitant]
  5. IRON 18MG [Concomitant]
  6. AMLODIPINE/VALSARTAN 5/320MG [Concomitant]
  7. ATORVASTATIN 20MG [Concomitant]
     Active Substance: ATORVASTATIN
  8. VITAMIN B12 100MCG [Concomitant]
  9. ELIQUIS [Concomitant]
     Active Substance: APIXABAN
  10. FOLIC ACID 1 MG [Concomitant]
  11. MAGNESIUM 250MG [Concomitant]

REACTIONS (3)
  - Amnesia [None]
  - Hemiparesis [None]
  - Cerebrovascular accident [None]
